FAERS Safety Report 21553410 (Version 1)
Quarter: 2022Q4

REPORT INFORMATION
  Report Type: Spontaneous
  Country: CN (occurrence: CN)
  Receive Date: 20221104
  Receipt Date: 20221104
  Transmission Date: 20230113
  Serious: Yes (Hospitalization, Other)
  Sender: FDA-Public Use
  Company Number: CN-GLAXOSMITHKLINE-CN2022GSK160499

PATIENT

DRUGS (1)
  1. ZEJULA [Suspect]
     Active Substance: NIRAPARIB
     Indication: Ovarian cancer
     Dosage: 200 MG, QD
     Route: 048
     Dates: start: 20220419, end: 20221005

REACTIONS (6)
  - Gastrointestinal haemorrhage [Recovering/Resolving]
  - Flank pain [Not Recovered/Not Resolved]
  - Full blood count decreased [Recovering/Resolving]
  - Anaemia [Recovering/Resolving]
  - Decreased appetite [Recovered/Resolved]
  - Abdominal distension [Unknown]

NARRATIVE: CASE EVENT DATE: 20220801
